FAERS Safety Report 17609586 (Version 3)
Quarter: 2020Q2

REPORT INFORMATION
  Report Type: Spontaneous
  Country: FR (occurrence: FR)
  Receive Date: 20200401
  Receipt Date: 20200512
  Transmission Date: 20200713
  Serious: Yes (Death, Other)
  Sender: FDA-Public Use
  Company Number: FR-ROCHE-2573617

PATIENT
  Age: 49 Year
  Sex: Male

DRUGS (9)
  1. AMPHOTERICIN B, LIPOSOME [Suspect]
     Active Substance: AMPHOTERICIN B
     Dosage: 10 MG/KG, UNKNOWN FREQ.
     Route: 065
  2. AMPHOTERICIN B, LIPOSOME [Suspect]
     Active Substance: AMPHOTERICIN B
     Indication: CUTANEOUS MUCORMYCOSIS
     Dosage: 3 MG/KG, UNKNOWN FREQ.
     Route: 065
  3. AMPHOTERICIN B, LIPOSOME [Suspect]
     Active Substance: AMPHOTERICIN B
     Dosage: 3 MG/KG, UNKNOWN FREQ.
     Route: 065
  4. MYCOPHENOLIC ACID. [Suspect]
     Active Substance: MYCOPHENOLIC ACID
     Indication: IMMUNOSUPPRESSANT DRUG THERAPY
     Route: 065
  5. AMPHOTERICIN B, LIPOSOME [Suspect]
     Active Substance: AMPHOTERICIN B
     Dosage: 10 MG/KG, UNKNOWN FREQ.
     Route: 065
  6. THYMOGLOBULIN [Suspect]
     Active Substance: LAPINE T-LYMPHOCYTE IMMUNE GLOBULIN
     Indication: IMMUNOSUPPRESSANT DRUG THERAPY
     Dosage: 1.25 MG/KG
     Route: 065
  7. TACROLIMUS. [Suspect]
     Active Substance: TACROLIMUS
     Indication: IMMUNOSUPPRESSANT DRUG THERAPY
     Route: 065
  8. RITUXIMAB. [Suspect]
     Active Substance: RITUXIMAB
     Indication: IMMUNOSUPPRESSANT DRUG THERAPY
     Dosage: 375 MG/M2
     Route: 065
  9. HEPARIN [Concomitant]
     Active Substance: HEPARIN SODIUM
     Indication: PULMONARY EMBOLISM
     Dosage: UNK UNK, UNKNOWN FREQ.
     Route: 065

REACTIONS (10)
  - Generalised tonic-clonic seizure [Recovered/Resolved]
  - Bronchopulmonary aspergillosis [Recovering/Resolving]
  - Off label use [Unknown]
  - Urinoma [Unknown]
  - Product use in unapproved indication [Unknown]
  - Aspergillus infection [Recovering/Resolving]
  - Drug ineffective [Unknown]
  - Pneumonia [Recovering/Resolving]
  - Disseminated mucormycosis [Fatal]
  - Mucormycosis [Fatal]
